FAERS Safety Report 10925595 (Version 4)
Quarter: 2015Q2

REPORT INFORMATION
  Report Type: Spontaneous
  Country: GB (occurrence: GB)
  Receive Date: 20150318
  Receipt Date: 20150522
  Transmission Date: 20150821
  Serious: Yes (Disabling, Other)
  Sender: FDA-Public Use
  Company Number: GB-PFIZER INC-2015096066

PATIENT
  Age: 78 Year
  Sex: Male

DRUGS (14)
  1. CORDARONE [Interacting]
     Active Substance: AMIODARONE HYDROCHLORIDE
     Dosage: 200 MG, 1X/DAY
     Route: 048
     Dates: start: 20150128, end: 20150304
  2. ADCAL-D3 [Concomitant]
     Active Substance: CALCIUM CARBONATE\CHOLECALCIFEROL
     Indication: RHEUMATOID ARTHRITIS
     Dosage: UNK
     Dates: start: 20090907
  3. ALENDRONIC ACID [Concomitant]
     Active Substance: ALENDRONIC ACID
     Indication: RHEUMATOID ARTHRITIS
     Dosage: UNK
     Dates: start: 20090907
  4. GLYCERYL TRINITRATE [Concomitant]
     Active Substance: NITROGLYCERIN
     Dosage: UNK
     Dates: start: 20081107
  5. CORDARONE [Suspect]
     Active Substance: AMIODARONE HYDROCHLORIDE
     Indication: ATRIAL FLUTTER
     Dosage: 200 MG, 3X/DAY
     Route: 048
     Dates: start: 20150107, end: 20150122
  6. PREDNISOLONE. [Interacting]
     Active Substance: PREDNISOLONE
     Indication: RHEUMATOID ARTHRITIS
     Dosage: UNK
     Route: 065
  7. LANSOPRAZOLE. [Concomitant]
     Active Substance: LANSOPRAZOLE
     Dosage: UNK
     Dates: start: 20120903
  8. TAMSULOSIN [Concomitant]
     Active Substance: TAMSULOSIN
     Indication: BENIGN PROSTATIC HYPERPLASIA
     Dosage: UNK
     Dates: start: 20110406
  9. ATORVASTATIN [Concomitant]
     Active Substance: ATORVASTATIN
     Dosage: UNK
     Dates: start: 20120912
  10. CORDARONE [Interacting]
     Active Substance: AMIODARONE HYDROCHLORIDE
     Dosage: 200 MG, 2X/DAY
     Route: 048
     Dates: start: 20150122, end: 20150128
  11. WARFARIN [Concomitant]
     Active Substance: WARFARIN
     Dosage: UNK
     Dates: start: 20140603
  12. PREDNISOLONE. [Concomitant]
     Active Substance: PREDNISOLONE
     Dosage: UNK
     Dates: start: 20140818
  13. PREDNISOLONE. [Interacting]
     Active Substance: PREDNISOLONE
     Dosage: UNK, DAILY
     Route: 065
     Dates: start: 20150325
  14. RAMIPRIL. [Concomitant]
     Active Substance: RAMIPRIL
     Indication: CORONARY ARTERY DISEASE
     Dosage: UNK
     Dates: start: 20090508

REACTIONS (3)
  - Photosensitivity reaction [Recovering/Resolving]
  - Drug interaction [Recovering/Resolving]
  - Rheumatoid arthritis [Recovering/Resolving]

NARRATIVE: CASE EVENT DATE: 201501
